FAERS Safety Report 6745846-X (Version None)
Quarter: 2010Q2

REPORT INFORMATION
  Report Type: 
  Country: None (occurrence: None)
  Receive Date: 20100528
  Receipt Date: 20100524
  Transmission Date: 20101027
  Serious: Yes (Other)
  Sender: FDA-Public Use
  Company Number: GB-ASTRAZENECA-2010SE21217

PATIENT
  Age: 74 Year
  Sex: Male

DRUGS (5)
  1. CASODEX [Suspect]
     Indication: PROSTATE CANCER
     Route: 048
  2. CASODEX [Suspect]
     Route: 048
     Dates: start: 20091014
  3. ZOLADEX [Suspect]
     Indication: PROSTATE CANCER
     Route: 058
     Dates: start: 20091014
  4. DOXAZOSIN MESYLATE [Concomitant]
  5. LOMOTIL [Concomitant]

REACTIONS (1)
  - BLINDNESS [None]
